FAERS Safety Report 11435976 (Version 1)
Quarter: 2015Q3

REPORT INFORMATION
  Report Type: Spontaneous
  Country: US (occurrence: US)
  Receive Date: 20150821
  Receipt Date: 20150821
  Transmission Date: 20151125
  Serious: No
  Sender: FDA-Public Use
  Company Number: US-ELI_LILLY_AND_COMPANY-US201312002791

PATIENT
  Sex: Male

DRUGS (2)
  1. CIALIS [Suspect]
     Active Substance: TADALAFIL
     Indication: ERECTILE DYSFUNCTION
     Dosage: 20 MG, PRN
     Route: 048
     Dates: start: 20130917
  2. CIALIS [Suspect]
     Active Substance: TADALAFIL
     Dosage: 1 DF, QD
     Route: 065
     Dates: start: 20140208

REACTIONS (2)
  - Therapeutic response decreased [Recovered/Resolved]
  - Ejaculation failure [Recovered/Resolved]
